FAERS Safety Report 6389249-9 (Version None)
Quarter: 2009Q4

REPORT INFORMATION
  Report Type: 
  Country: None (occurrence: None)
  Receive Date: 20091006
  Receipt Date: 20090925
  Transmission Date: 20100525
  Serious: Yes (Other)
  Sender: FDA-Public Use
  Company Number: PHHY2009JP25011

PATIENT
  Age: 95 Year
  Sex: Female

DRUGS (5)
  1. DIOVAN [Suspect]
     Indication: HYPERTENSION
     Dosage: 40 MG, BID
     Route: 048
  2. WARFARIN [Concomitant]
     Dosage: 2.5 MG, UNK
     Route: 048
  3. SODIUM CHLORIDE [Concomitant]
     Dosage: 3 G, UNK
     Route: 065
  4. TPN [Concomitant]
     Dosage: 800 ML, UNK
     Route: 048
  5. DIGOSIN [Concomitant]
     Dosage: 0.125 MG, UNK
     Route: 048

REACTIONS (1)
  - WHITE BLOOD CELL COUNT DECREASED [None]
